FAERS Safety Report 5980305-3 (Version None)
Quarter: 2008Q4

REPORT INFORMATION
  Report Type: 
  Country: None (occurrence: None)
  Receive Date: 20081205
  Receipt Date: 20081201
  Transmission Date: 20090506
  Serious: Yes (Other)
  Sender: FDA-Public Use
  Company Number: PHEH2008US10691

PATIENT
  Sex: Male

DRUGS (1)
  1. ENABLEX [Suspect]
     Dosage: 7.5 MG, UNK
     Dates: start: 20081101

REACTIONS (5)
  - BLOOD URINE PRESENT [None]
  - CONDITION AGGRAVATED [None]
  - CONSTIPATION [None]
  - DYSURIA [None]
  - POLLAKIURIA [None]
